FAERS Safety Report 5252551-8 (Version None)
Quarter: 2007Q1

REPORT INFORMATION
  Report Type: 
  Country: None (occurrence: None)
  Receive Date: 20070226
  Receipt Date: 20070213
  Transmission Date: 20070707
  Serious: Yes (Other)
  Sender: FDA-Public Use
  Company Number: STI-2006-00632

PATIENT
  Age: 79 Year
  Sex: Female

DRUGS (10)
  1. ERYTHROMYCIN [Suspect]
  2. TEGRETOL [Suspect]
     Dosage: 600 MG ??
  3. ZINC ACETAT (ZINC ACETATE) [Suspect]
  4. ATORVASTATIN CALCIUM [Concomitant]
  5. CADURA (DOXAZOSIN MESILATE) [Concomitant]
  6. DOXAZOSIN (DOXAZOSIN) [Concomitant]
  7. IRBESARTAN [Concomitant]
  8. NIFEDIPINE [Concomitant]
  9. PLANTAGO OVATA (PLANTAGO OVATA) [Concomitant]
  10. RAMIPRIL [Concomitant]

REACTIONS (7)
  - AMNESIA [None]
  - CELLULITIS [None]
  - CONFUSIONAL STATE [None]
  - DIARRHOEA [None]
  - FAECAL INCONTINENCE [None]
  - MALAISE [None]
  - URINARY TRACT INFECTION [None]
